FAERS Safety Report 5954845-7 (Version None)
Quarter: 2008Q4

REPORT INFORMATION
  Report Type: 
  Country: None (occurrence: None)
  Receive Date: 20081117
  Receipt Date: 20081106
  Transmission Date: 20090506
  Serious: Yes (Other)
  Sender: FDA-Public Use
  Company Number: ES-ASTRAZENECA-2008AC02887

PATIENT
  Age: 4 Year
  Sex: Male

DRUGS (1)
  1. EMLA [Suspect]
     Route: 061
     Dates: start: 20070701, end: 20070701

REACTIONS (3)
  - APPLICATION SITE OEDEMA [None]
  - APPLICATION SITE PRURITUS [None]
  - APPLICATION SITE REACTION [None]
